FAERS Safety Report 9159637 (Version 1)
Quarter: 2013Q1

REPORT INFORMATION
  Report Type: Spontaneous
  Country: US (occurrence: None)
  Receive Date: 20130312
  Receipt Date: 20130312
  Transmission Date: 20140127
  Serious: No
  Sender: FDA-Public Use
  Company Number: None

PATIENT
  Age: 58 Year
  Sex: Female
  Weight: 72.58 kg

DRUGS (3)
  1. VENLAFAXINE [Suspect]
     Indication: MENOPAUSE
     Route: 048
     Dates: start: 20130301, end: 20130311
  2. VENLAFAXINE [Suspect]
     Indication: DEPRESSION
     Route: 048
     Dates: start: 20130301, end: 20130311
  3. VENLAFAXINE [Suspect]
     Indication: HOT FLUSH
     Route: 048
     Dates: start: 20130301, end: 20130311

REACTIONS (8)
  - Drug ineffective [None]
  - Depression [None]
  - Hot flush [None]
  - Product substitution issue [None]
  - Product quality issue [None]
  - Drug withdrawal syndrome [None]
  - Visual impairment [None]
  - Anxiety [None]
